FAERS Safety Report 11518635 (Version 1)
Quarter: 2015Q3

REPORT INFORMATION
  Report Type: Spontaneous
  Country: US (occurrence: US)
  Receive Date: 20150917
  Receipt Date: 20150917
  Transmission Date: 20151125
  Serious: No
  Sender: FDA-Public Use
  Company Number: US-BAUSCH-BL-2014-008327

PATIENT
  Age: 60 Year
  Sex: Male
  Weight: 122 kg

DRUGS (13)
  1. ZETIA 10 MG [Concomitant]
     Indication: PRODUCT USED FOR UNKNOWN INDICATION
  2. VITAMIM B COMPLEX [Concomitant]
     Indication: PRODUCT USED FOR UNKNOWN INDICATION
  3. ATACAND 8 MG [Concomitant]
     Indication: PRODUCT USED FOR UNKNOWN INDICATION
  4. ALPRAZOLAM 0.25 MG [Concomitant]
     Active Substance: ALPRAZOLAM
     Indication: PRODUCT USED FOR UNKNOWN INDICATION
  5. EFUDEX [Suspect]
     Active Substance: FLUOROURACIL
     Indication: SKIN LESION
     Route: 061
     Dates: start: 20141016, end: 20141026
  6. VITAMIN C 1000 MG [Concomitant]
     Indication: PRODUCT USED FOR UNKNOWN INDICATION
  7. COREG CR 40 MG [Concomitant]
     Indication: PRODUCT USED FOR UNKNOWN INDICATION
  8. PROTONIX 40 MG [Concomitant]
     Indication: PRODUCT USED FOR UNKNOWN INDICATION
  9. DICYCLOMINE 10 MG [Concomitant]
     Indication: PRODUCT USED FOR UNKNOWN INDICATION
  10. VITAMIN D 1000 IU [Concomitant]
     Indication: PRODUCT USED FOR UNKNOWN INDICATION
  11. WARFARIN  2.5 MG [Concomitant]
     Active Substance: WARFARIN
     Indication: PRODUCT USED FOR UNKNOWN INDICATION
  12. CARDURA 1 MG [Concomitant]
     Indication: PRODUCT USED FOR UNKNOWN INDICATION
  13. WARFARIN  2.5 MG [Concomitant]
     Active Substance: WARFARIN

REACTIONS (3)
  - Skin exfoliation [Recovered/Resolved]
  - Burning sensation [Recovered/Resolved]
  - Skin haemorrhage [Recovered/Resolved]
